FAERS Safety Report 14422839 (Version 1)
Quarter: 2018Q1

REPORT INFORMATION
  Report Type: Spontaneous
  Country: US (occurrence: US)
  Receive Date: 20180123
  Receipt Date: 20180123
  Transmission Date: 20180509
  Serious: No
  Sender: FDA-Public Use
  Company Number: US-BAYER-2018-014496

PATIENT
  Age: 91 Year
  Sex: Male
  Weight: 63.99 kg

DRUGS (1)
  1. MIRALAX [Suspect]
     Active Substance: POLYETHYLENE GLYCOL 3350
     Dosage: 1 DF, UNK
     Route: 048
     Dates: start: 20180122

REACTIONS (2)
  - Circumstance or information capable of leading to medication error [Unknown]
  - Expired product administered [Unknown]

NARRATIVE: CASE EVENT DATE: 20180122
